FAERS Safety Report 9104920 (Version 1)
Quarter: 2013Q1

REPORT INFORMATION
  Report Type: Spontaneous
  Country: AT (occurrence: AT)
  Receive Date: 20130220
  Receipt Date: 20130220
  Transmission Date: 20140127
  Serious: Yes (Death, Hospitalization, Other)
  Sender: FDA-Public Use
  Company Number: AT-JNJFOC-20130112078

PATIENT
  Age: 91 Year
  Sex: Female
  Weight: 70 kg

DRUGS (9)
  1. XARELTO [Suspect]
     Indication: THROMBOSIS PROPHYLAXIS
     Route: 048
  2. RISPERDAL [Concomitant]
     Route: 065
  3. AXURA [Concomitant]
     Route: 065
  4. LASIX [Concomitant]
     Route: 065
  5. PANTOLOC [Concomitant]
     Route: 065
  6. NOVALGIN [Concomitant]
     Route: 065
  7. TEMESTA [Concomitant]
     Route: 065
  8. AKTIFERRIN [Concomitant]
     Route: 065
  9. FUCIDIN [Concomitant]
     Route: 065

REACTIONS (4)
  - Cardiac failure [Fatal]
  - Lower gastrointestinal haemorrhage [Fatal]
  - Anaemia [Fatal]
  - Shock haemorrhagic [Unknown]
